FAERS Safety Report 13619610 (Version 1)
Quarter: 2017Q2

REPORT INFORMATION
  Report Type: Report from Study
  Country: US (occurrence: US)
  Receive Date: 20170606
  Receipt Date: 20170606
  Transmission Date: 20170830
  Serious: No
  Sender: FDA-Public Use
  Company Number: US-AMGEN-USASL2017027252

PATIENT
  Age: 51 Year
  Sex: Female
  Weight: 103.86 kg

DRUGS (26)
  1. PROCRIT [Suspect]
     Active Substance: ERYTHROPOIETIN
     Indication: NEPHROGENIC ANAEMIA
     Dosage: 20000 UNIT, UNK
     Route: 065
     Dates: start: 20170214
  2. HYDRALAZINE HCL [Concomitant]
     Active Substance: HYDRALAZINE HYDROCHLORIDE
     Dosage: 50 MG, (FOR 30 DAYS)
     Route: 048
     Dates: start: 20170131
  3. GABAPENTIN. [Concomitant]
     Active Substance: GABAPENTIN
     Dosage: 800 MG, UNK (30 DAYS)
     Route: 048
     Dates: start: 20170131
  4. RISPERIDONE. [Concomitant]
     Active Substance: RISPERIDONE
     Dosage: 1 MG, UNK (FOR 30 DAYS)
     Route: 048
     Dates: start: 20161128
  5. FOLIC ACID. [Concomitant]
     Active Substance: FOLIC ACID
     Dosage: 1 MG, UNK (FOR 30 DAYS)
     Dates: start: 20161108
  6. IRON [Concomitant]
     Active Substance: IRON
     Indication: ANAEMIA
     Dosage: UNK
     Route: 042
  7. CLONIDINE HCL [Concomitant]
     Active Substance: CLONIDINE HYDROCHLORIDE
     Dosage: 0.2 MG, UNK (30 DAYS)
     Route: 048
     Dates: start: 20170131
  8. ASPIRIN EC [Concomitant]
     Active Substance: ASPIRIN
     Dosage: 81 MG, UNK (FOR 30 DAYS)
     Route: 048
     Dates: start: 20170131
  9. RANITIDINE HCL [Concomitant]
     Active Substance: RANITIDINE HYDROCHLORIDE
     Dosage: 150 MG, UNK (FOR 30 DAYS)
     Route: 048
     Dates: start: 20170131
  10. FUROSEMIDE. [Concomitant]
     Active Substance: FUROSEMIDE
     Dosage: 40 MG, UNK (FOR 30 DAYS)
     Route: 048
     Dates: start: 20170104
  11. TRAMADOL HCL [Concomitant]
     Active Substance: TRAMADOL HYDROCHLORIDE
     Dosage: 50 MG, UNK (FOR 10 DAYS)
     Route: 048
     Dates: start: 20170102
  12. AZITHROMYCIN ANHYDROUS. [Concomitant]
     Active Substance: AZITHROMYCIN ANHYDROUS
     Dosage: 250 MG, UNK (FOR 5 DAYS)
     Route: 048
     Dates: start: 20161215
  13. TIZANIDINE HCL [Concomitant]
     Active Substance: TIZANIDINE HYDROCHLORIDE
     Dosage: 2 MG, (FOR 30 DAYS)
     Route: 048
     Dates: start: 20170131
  14. VITAMIN D3 [Concomitant]
     Active Substance: CHOLECALCIFEROL
     Dosage: 1000 UNIT, UNK (30 DAYS)
     Route: 048
     Dates: start: 20170131
  15. LOSARTAN POTASSIUM. [Concomitant]
     Active Substance: LOSARTAN POTASSIUM
     Dosage: 100 MG, UNK (FOR 30 DAYS)
     Route: 048
     Dates: start: 20170131
  16. CLONIDINE HCL [Concomitant]
     Active Substance: CLONIDINE HYDROCHLORIDE
     Dosage: 0.1 MG, UNK (FOR 30 DAYS)
     Route: 048
     Dates: start: 20161230
  17. PREDNISONE. [Concomitant]
     Active Substance: PREDNISONE
     Dosage: 20 MG, UNK (FOR 5 DAYS)
     Route: 048
     Dates: start: 20161215
  18. FLUCONAZOLE. [Concomitant]
     Active Substance: FLUCONAZOLE
     Dosage: 150 MG, UNK (FOR 7 DAYS)
     Route: 048
     Dates: start: 20161208
  19. IRON [Concomitant]
     Active Substance: IRON
     Indication: NEPHROGENIC ANAEMIA
  20. PROCRIT [Suspect]
     Active Substance: ERYTHROPOIETIN
     Indication: ANAEMIA
     Dosage: UNK
     Route: 065
  21. PROCRIT [Suspect]
     Active Substance: ERYTHROPOIETIN
     Dosage: 10000 UNIT, UNK
     Route: 065
     Dates: start: 20170216
  22. VERAPAMIL HCL [Concomitant]
     Active Substance: VERAPAMIL HYDROCHLORIDE
     Dosage: 240 MG, UNK (FOR 30 DAYS)
     Route: 048
     Dates: start: 20170131
  23. ROSUVASTATIN CALCIUM. [Concomitant]
     Active Substance: ROSUVASTATIN CALCIUM
     Dosage: 20 MG, UNK (FOR 30 DAYS)
     Route: 048
     Dates: start: 20170131
  24. NOVOLIN R [Concomitant]
     Active Substance: INSULIN HUMAN
     Dosage: 100 UNIT/ML UNK (FOR 30 DAYS)
     Dates: start: 20170131
  25. FUROSEMIDE. [Concomitant]
     Active Substance: FUROSEMIDE
     Dosage: 20 MG, UNK (FOR 30 DAYS)
     Route: 048
     Dates: start: 20161108
  26. OMEPRAZOLE. [Concomitant]
     Active Substance: OMEPRAZOLE
     Dosage: 40 MG, UNK (30 DAYS)
     Route: 048
     Dates: start: 20161206

REACTIONS (3)
  - Large intestinal polypectomy [Unknown]
  - Fatigue [Unknown]
  - Haemoglobin decreased [Not Recovered/Not Resolved]

NARRATIVE: CASE EVENT DATE: 20170214
